FAERS Safety Report 10213882 (Version 1)
Quarter: 2014Q2

REPORT INFORMATION
  Report Type: Spontaneous
  Country: AU (occurrence: None)
  Receive Date: 20140529
  Receipt Date: 20140529
  Transmission Date: 20141212
  Serious: Yes (Hospitalization)
  Sender: FDA-Public Use
  Company Number: 2014AP003062

PATIENT
  Sex: Female

DRUGS (1)
  1. QUETIAPINE [Suspect]
     Indication: DEPRESSION
     Dates: start: 20140502

REACTIONS (5)
  - Dysphagia [None]
  - Heart rate increased [None]
  - Feeling cold [None]
  - Dry mouth [None]
  - Fatigue [None]
